FAERS Safety Report 11441331 (Version 1)
Quarter: 2015Q3

REPORT INFORMATION
  Report Type: Spontaneous
  Country: US (occurrence: US)
  Receive Date: 20150821
  Receipt Date: 20150821
  Transmission Date: 20151125
  Serious: No
  Sender: FDA-Public Use
  Company Number: US-ELI_LILLY_AND_COMPANY-US200805000261

PATIENT
  Sex: Male

DRUGS (2)
  1. ZOLPIDEM [Concomitant]
     Active Substance: ZOLPIDEM\ZOLPIDEM TARTRATE
  2. CYMBALTA [Suspect]
     Active Substance: DULOXETINE HYDROCHLORIDE
     Dosage: 30 MG, UNK

REACTIONS (3)
  - Logorrhoea [Unknown]
  - Hallucination, visual [Unknown]
  - Aggression [Unknown]

NARRATIVE: CASE EVENT DATE: 20080429
